FAERS Safety Report 8855089 (Version 1)
Quarter: 2012Q4

REPORT INFORMATION
  Report Type: 
  Country: US (occurrence: US)
  Receive Date: 20121023
  Receipt Date: 20121023
  Transmission Date: 20130627
  Serious: Yes (Life-Threatening, Other)
  Sender: FDA-Public Use
  Company Number: US-ASTRAZENECA-2012SE79916

PATIENT
  Sex: Male

DRUGS (1)
  1. CRESTOR [Suspect]
     Route: 048

REACTIONS (6)
  - Apparent death [Unknown]
  - Myocardial infarction [Unknown]
  - Myocardial infarction [Unknown]
  - Oxygen saturation decreased [Unknown]
  - Blood cholesterol increased [Unknown]
  - Drug dose omission [Unknown]
